FAERS Safety Report 9030148 (Version 1)
Quarter: 2013Q1

REPORT INFORMATION
  Report Type: Spontaneous
  Country: CN (occurrence: CN)
  Receive Date: 20130125
  Receipt Date: 20130125
  Transmission Date: 20140127
  Serious: Yes (Hospitalization)
  Sender: FDA-Public Use
  Company Number: CN-AMGEN-CHNSP2013004886

PATIENT
  Sex: 0

DRUGS (2)
  1. ENBREL [Suspect]
     Indication: RHEUMATOID ARTHRITIS
     Dosage: 25 MG, 2X/WEEK
     Dates: start: 201208
  2. DICLOFENAC SODIUM [Suspect]
     Dosage: UNK

REACTIONS (2)
  - Pulmonary fibrosis [Unknown]
  - Interstitial lung disease [Unknown]
